FAERS Safety Report 26039678 (Version 2)
Quarter: 2025Q4

REPORT INFORMATION
  Report Type: Report from Study
  Country: US (occurrence: US)
  Receive Date: 20251113
  Receipt Date: 20251208
  Transmission Date: 20260117
  Serious: Yes (Death, Hospitalization)
  Sender: RECORDATI
  Company Number: US-ORPHANEU-2025008069

PATIENT
  Sex: Male
  Weight: 97.959 kg

DRUGS (29)
  1. ISTURISA [Suspect]
     Active Substance: OSILODROSTAT PHOSPHATE
     Indication: Cushing^s syndrome
     Dosage: 2 MG, BID (1 MG TABLET)
     Route: 048
     Dates: start: 20251017
  2. ISTURISA [Suspect]
     Active Substance: OSILODROSTAT PHOSPHATE
     Dosage: 2 MG, BID (1 MG TABLET)
     Route: 048
     Dates: start: 2025, end: 2025
  3. ISTURISA [Suspect]
     Active Substance: OSILODROSTAT PHOSPHATE
     Dosage: 2 MG, BID (1 MG TABLET)
     Route: 048
     Dates: start: 2025, end: 20251118
  4. ISTURISA [Suspect]
     Active Substance: OSILODROSTAT PHOSPHATE
     Dosage: 5 MG, BID (5 MG TABLET) (DOSE INCREASED)
     Route: 048
     Dates: start: 2025
  5. TYLENOL [Concomitant]
     Active Substance: ACETAMINOPHEN
     Indication: Product used for unknown indication
     Dosage: 975 MG, PRN (CAPSULE 325 MG)
     Route: 048
     Dates: start: 20251001
  6. ATOVAQUONE [Concomitant]
     Active Substance: ATOVAQUONE
     Indication: Product used for unknown indication
     Dosage: 1500 MG, DAILY (SUSPENSION 750 MG/5)
     Route: 048
     Dates: start: 20251001
  7. BUMETANIDE [Concomitant]
     Active Substance: BUMETANIDE
     Indication: Product used for unknown indication
     Dosage: 4 MG, BID (TABLET 2 MG)
     Route: 048
     Dates: start: 20251001
  8. CARVEDILOL [Concomitant]
     Active Substance: CARVEDILOL
     Indication: Product used for unknown indication
     Dosage: 12.5 MG, BID (TABLET 12.5 MG)
     Route: 048
     Dates: start: 20251001
  9. DIAZEPAM [Concomitant]
     Active Substance: DIAZEPAM
     Indication: Product used for unknown indication
     Dosage: 5 MG, PRN (TABLET 5 MG)
     Route: 048
     Dates: start: 20251001
  10. DICLOFENAC SODIUM [Concomitant]
     Active Substance: DICLOFENAC SODIUM
     Indication: Product used for unknown indication
     Dosage: 2 GRAM, QID (EXTERNAL GEL 1 PERCENT)
     Dates: start: 20251001
  11. ENOXAPARIN SODIUM [Concomitant]
     Active Substance: ENOXAPARIN SODIUM
     Indication: Product used for unknown indication
     Dosage: 40 MG/0.4 ML, INJECTION SOLUTION, TWICE A DAY (ROUTE: INJECTION)
     Dates: start: 20251001
  12. GABAPENTIN [Concomitant]
     Active Substance: GABAPENTIN
     Indication: Product used for unknown indication
     Dosage: 300 MG, QD (HS) (AT BEDTIME), CAPSULE 300 MG
     Route: 048
     Dates: start: 20251001
  13. INSULIN GLARGINE [Concomitant]
     Active Substance: INSULIN GLARGINE
     Indication: Product used for unknown indication
     Dosage: 33 UNIT,DAILY, SUBCUTANEOUS SOLUTION
     Route: 058
     Dates: start: 20251001
  14. INSULIN LISPRO [Concomitant]
     Active Substance: INSULIN LISPRO
     Indication: Product used for unknown indication
     Dosage: 16 UNITS (INJECTION SOLUTION) (ROUTE: INJECTION), THREE TIMES A DAY
     Dates: start: 20251001
  15. KETOCONAZOLE [Concomitant]
     Active Substance: KETOCONAZOLE
     Indication: Product used for unknown indication
     Dosage: 400 MG, BID (TABLET 200 MG)
     Route: 048
     Dates: start: 20251001
  16. TAMSULOSIN HYDROCHLORIDE [Concomitant]
     Active Substance: TAMSULOSIN HYDROCHLORIDE
     Indication: Product used for unknown indication
     Dosage: 0.4 MG DAILY (CAPSULE 0.4 MG)
     Route: 048
     Dates: start: 20251001
  17. SPIRONOLACTONE [Concomitant]
     Active Substance: SPIRONOLACTONE
     Indication: Product used for unknown indication
     Dosage: 100 MG, QD (TABLET 100 MG)
     Route: 048
     Dates: start: 20251001
  18. SENNA [Concomitant]
     Active Substance: SENNOSIDES
     Indication: Product used for unknown indication
     Dosage: 17.2 MG, PRN (TABLET 8.6 MG) 2 TABLET
     Route: 048
     Dates: start: 20251001
  19. MIRALAX [Concomitant]
     Active Substance: POLYETHYLENE GLYCOL 3350
     Indication: Product used for unknown indication
     Dosage: 17 (UNITS NOT REPORTED) POWDER 17 GM/SCOOP, AS NEEDED
     Route: 048
     Dates: start: 20251001
  20. PANTOPRAZOLE SODIUM [Concomitant]
     Active Substance: PANTOPRAZOLE SODIUM
     Indication: Product used for unknown indication
     Dosage: 40 MG, DAILY (TABLET DEL)
     Route: 048
     Dates: start: 20251001
  21. OXYCODONE HYDROCHLORIDE [Concomitant]
     Active Substance: OXYCODONE HYDROCHLORIDE
     Indication: Product used for unknown indication
     Dosage: 5 MG, PRN (TABLET 5 MG) (QID)
     Route: 048
     Dates: start: 20251001
  22. ZOFRAN [Concomitant]
     Active Substance: ONDANSETRON HYDROCHLORIDE
     Indication: Product used for unknown indication
     Dosage: 4 MG, PRN (TABLET 4 MG)
     Route: 048
     Dates: start: 20251001
  23. NYSTATIN [Concomitant]
     Active Substance: NYSTATIN
     Indication: Product used for unknown indication
     Dosage: 100000 UNI, TWICE A DAY (EXTERNAL POWDER)
     Dates: start: 20251001
  24. NIFEDIPINE [Concomitant]
     Active Substance: NIFEDIPINE
     Indication: Product used for unknown indication
     Dosage: 60 MG, DAILY, OSMOTIC RELEASE
     Route: 048
     Dates: start: 20251001
  25. NALOXONE HCL [Concomitant]
     Active Substance: NALOXONE HYDROCHLORIDE
     Indication: Product used for unknown indication
     Dosage: NASAL LIQUID 4 MG/0.1 M, AS NEEDED
     Route: 045
     Dates: start: 20251001
  26. MELATONIN [Concomitant]
     Active Substance: MELATONIN
     Indication: Product used for unknown indication
     Dosage: 2 MG, QD (HS) TABLET 1 MG
     Route: 048
     Dates: start: 20251001
  27. LIDOCAINE [Concomitant]
     Active Substance: LIDOCAINE
     Indication: Product used for unknown indication
     Dosage: 5 PERCENT, BID (EXTERNAL PATCH 5 PERCENT)
     Dates: start: 20251001
  28. METOPIRONE [Concomitant]
     Active Substance: METYRAPONE
     Indication: Product used for unknown indication
     Dosage: 500 MG, BID (CAPSULE 250 MG)
     Route: 048
     Dates: start: 20251001
  29. LYSODREN [Concomitant]
     Active Substance: MITOTANE
     Indication: Product used for unknown indication
     Dosage: 500 MG, TID (TABLET 500 MG)
     Route: 048
     Dates: start: 20251001

REACTIONS (3)
  - Death [Fatal]
  - Cardiac arrest [Not Recovered/Not Resolved]
  - Haemorrhage [Not Recovered/Not Resolved]

NARRATIVE: CASE EVENT DATE: 20250101
